FAERS Safety Report 6759140-4 (Version None)
Quarter: 2010Q2

REPORT INFORMATION
  Report Type: 
  Country: None (occurrence: None)
  Receive Date: 20100607
  Receipt Date: 20100528
  Transmission Date: 20101027
  Serious: Yes (Death, Hospitalization)
  Sender: FDA-Public Use
  Company Number: TW-BAXTER-2010BH014610

PATIENT
  Age: 56 Year
  Sex: Male

DRUGS (6)
  1. DIANEAL [Suspect]
     Indication: PERITONEAL DIALYSIS
     Route: 033
     Dates: start: 20060901
  2. DIANEAL [Suspect]
     Route: 033
     Dates: start: 20060901
  3. DIANEAL [Suspect]
     Indication: PERITONEAL DIALYSIS
     Route: 033
     Dates: start: 20060901
  4. DIANEAL [Suspect]
     Route: 033
     Dates: start: 20060901
  5. EXTRANEAL [Suspect]
     Indication: PERITONEAL DIALYSIS
     Route: 033
     Dates: start: 20060901
  6. EXTRANEAL [Suspect]
     Route: 033
     Dates: start: 20060901

REACTIONS (1)
  - CEREBRAL HAEMORRHAGE [None]
